FAERS Safety Report 18397512 (Version 1)
Quarter: 2020Q4

REPORT INFORMATION
  Report Type: Spontaneous
  Country: KR (occurrence: KR)
  Receive Date: 20201019
  Receipt Date: 20201019
  Transmission Date: 20210114
  Serious: Yes (Other)
  Sender: FDA-Public Use
  Company Number: NVSC2020KR278761

PATIENT
  Age: 51 Year
  Sex: Male

DRUGS (7)
  1. CARVEDILOL. [Suspect]
     Active Substance: CARVEDILOL
     Indication: CARDIAC FAILURE
     Dosage: 6.25 MG
     Route: 065
  2. IVABRADINE [Interacting]
     Active Substance: IVABRADINE
     Dosage: 10 MG (NINE DAYS AFTER ADMISSION)
     Route: 065
  3. VALSARTAN. [Concomitant]
     Active Substance: VALSARTAN
     Indication: CARDIAC FAILURE
     Dosage: 40 MG
     Route: 065
  4. SPIRONOLACTONE. [Concomitant]
     Active Substance: SPIRONOLACTONE
     Indication: CARDIAC FAILURE
     Dosage: 12.5 MG
     Route: 065
  5. IVABRADINE [Interacting]
     Active Substance: IVABRADINE
     Indication: TACHYCARDIA
     Dosage: 5 MG (THREE DAYS AFTER ADMSSION)
     Route: 065
  6. FUROSEMIDE. [Concomitant]
     Active Substance: FUROSEMIDE
     Indication: CARDIAC FAILURE
     Dosage: 20 MG
     Route: 048
  7. CARVEDILOL. [Interacting]
     Active Substance: CARVEDILOL
     Dosage: 12.5 MG (DOSE INCREASED)
     Route: 065

REACTIONS (2)
  - Electrocardiogram QT prolonged [Recovering/Resolving]
  - Torsade de pointes [Unknown]
